FAERS Safety Report 4493300-0 (Version None)
Quarter: 2004Q4

REPORT INFORMATION
  Report Type: 
  Country: None (occurrence: None)
  Receive Date: 20041102
  Receipt Date: 20041020
  Transmission Date: 20050328
  Serious: Yes (Death, Other)
  Sender: FDA-Public Use
  Company Number: USA040874173

PATIENT
  Age: 38 Year
  Sex: Male

DRUGS (2)
  1. SYMBYAX [Suspect]
     Indication: BIPOLAR I DISORDER
     Dates: start: 20040101, end: 20040101
  2. LITHIUM [Concomitant]

REACTIONS (2)
  - COMPLETED SUICIDE [None]
  - TREATMENT NONCOMPLIANCE [None]
